FAERS Safety Report 5719271-4 (Version None)
Quarter: 2008Q1

REPORT INFORMATION
  Report Type: 
  Country: None (occurrence: None)
  Receive Date: 20080303
  Receipt Date: 20080418
  Transmission Date: 20080703
  Serious: Yes (Other)
  Sender: FDA-Public Use
  Company Number: CH-BRACCO-000006

PATIENT
  Sex: Male
  Weight: 71 kg

DRUGS (5)
  1. PROHANCE [Suspect]
     Indication: DIAGNOSTIC PROCEDURE
     Route: 042
     Dates: start: 20060717, end: 20060717
  2. PROHANCE [Suspect]
     Indication: MULTIPLE MYELOMA
     Route: 042
     Dates: start: 20060717, end: 20060717
  3. MAGNEVIST [Suspect]
     Route: 065
     Dates: start: 20060714, end: 20060714
  4. CYTARABINE [Concomitant]
     Route: 037
     Dates: start: 20060717, end: 20060725
  5. THALIDOMIDE [Concomitant]
     Route: 065
     Dates: start: 20060721, end: 20060721

REACTIONS (1)
  - NEPHROGENIC SYSTEMIC FIBROSIS [None]
